FAERS Safety Report 23145616 (Version 2)
Quarter: 2023Q4

REPORT INFORMATION
  Report Type: Spontaneous
  Country: IT (occurrence: IT)
  Receive Date: 20231103
  Receipt Date: 20231106
  Transmission Date: 20240110
  Serious: No
  Sender: FDA-Public Use
  Company Number: IT-SCALL-2023-IT-093357

PATIENT
  Sex: Male

DRUGS (1)
  1. DUTASTERIDE [Suspect]
     Active Substance: DUTASTERIDE
     Route: 065

REACTIONS (4)
  - Intercepted product administration error [Unknown]
  - Product physical issue [Unknown]
  - Packaging design issue [Unknown]
  - Product complaint [Unknown]
